FAERS Safety Report 21878012 (Version 3)
Quarter: 2023Q1

REPORT INFORMATION
  Report Type: Report from Study
  Country: CH (occurrence: CH)
  Receive Date: 20230118
  Receipt Date: 20230208
  Transmission Date: 20230418
  Serious: Yes (Hospitalization)
  Sender: FDA-Public Use
  Company Number: CH-002147023-NVSC2021CH147350

PATIENT
  Age: 63 Year
  Sex: Male
  Weight: 77.9 kg

DRUGS (23)
  1. NAPORAFENIB [Suspect]
     Active Substance: NAPORAFENIB
     Indication: Malignant melanoma
     Dosage: 400 MG, BID
     Route: 048
     Dates: start: 20210504
  2. RIBOCICLIB [Suspect]
     Active Substance: RIBOCICLIB
     Indication: Malignant melanoma
     Dosage: 400 MG, QD
     Route: 048
     Dates: start: 20210504
  3. ELIDEL [Concomitant]
     Active Substance: PIMECROLIMUS
     Indication: Rash pustular
     Dosage: UNK
     Route: 065
     Dates: start: 20210601, end: 20210708
  4. SURMONTIL [Concomitant]
     Active Substance: TRIMIPRAMINE MALEATE
     Indication: Depression
     Dosage: UNK
     Route: 065
     Dates: start: 2021, end: 20210629
  5. ORACEA [Concomitant]
     Active Substance: DOXYCYCLINE
     Indication: Rash pustular
     Dosage: UNK
     Route: 065
     Dates: start: 20210601, end: 20210708
  6. ORACEA [Concomitant]
     Active Substance: DOXYCYCLINE
     Indication: Rash pustular
  7. HYLO DUAL [Concomitant]
     Indication: Eczema eyelids
     Dosage: UNK
     Route: 065
     Dates: start: 20210601
  8. BLEPHACLEAN [Concomitant]
     Indication: Eczema eyelids
     Dosage: UNK
     Route: 065
     Dates: start: 20210601
  9. VITAMIIN A [Concomitant]
     Indication: Eczema eyelids
     Dosage: UNK
     Route: 065
     Dates: start: 20210601
  10. FRESUBIN JUCY DRINK [Concomitant]
     Indication: Weight decreased
     Dosage: UNK
     Route: 065
     Dates: start: 20210601
  11. IMAZOL CREMEPASTE [Concomitant]
     Indication: Rash pustular
     Dosage: UNK
     Route: 065
     Dates: start: 20210615, end: 20210708
  12. VALDOXAN [Concomitant]
     Active Substance: AGOMELATINE
     Indication: Depression
     Dosage: UNK
     Route: 065
     Dates: start: 2021
  13. CLOBETASOL [Concomitant]
     Active Substance: CLOBETASOL
     Indication: Rash pustular
     Dosage: UNK
     Route: 065
     Dates: start: 20210613, end: 20210614
  14. RECTOGESIC [Concomitant]
     Indication: Haemorrhoids
     Dosage: UNK
     Route: 065
     Dates: start: 20210622, end: 20210630
  15. NAPROXEN [Concomitant]
     Active Substance: NAPROXEN
     Indication: Groin pain
     Dosage: UNK
     Route: 065
     Dates: start: 20210429
  16. ACETAMINOPHEN [Concomitant]
     Active Substance: ACETAMINOPHEN
     Indication: Groin pain
     Dosage: UNK
     Route: 065
     Dates: start: 20210429
  17. ACETAMINOPHEN [Concomitant]
     Active Substance: ACETAMINOPHEN
     Indication: Sepsis
  18. NOVALGIN (METAMIZOLE SODIUM) [Concomitant]
     Active Substance: METAMIZOLE SODIUM
     Indication: Groin pain
     Dosage: UNK
     Route: 065
     Dates: start: 20210429
  19. NOVALGIN (METAMIZOLE SODIUM) [Concomitant]
     Active Substance: METAMIZOLE SODIUM
     Indication: Sepsis
  20. CHOLECALCIFEROL [Concomitant]
     Active Substance: CHOLECALCIFEROL
     Indication: Osteoporosis prophylaxis
     Dosage: UNK
     Route: 065
     Dates: start: 2021
  21. POLYETHYLENE GLYCOLS [Concomitant]
     Active Substance: POLYETHYLENE GLYCOLS
     Indication: Constipation
     Dosage: UNK
     Route: 065
     Dates: start: 2021
  22. BUTYLSCOPOLAMINE BROMIDE [Concomitant]
     Active Substance: BUTYLSCOPOLAMINE BROMIDE
     Indication: Abdominal pain
     Dosage: UNK
     Route: 065
     Dates: start: 20210330
  23. PASPERTIN [Concomitant]
     Indication: Vomiting
     Dosage: UNK
     Route: 065
     Dates: start: 20210518, end: 20220111

REACTIONS (1)
  - Sepsis [Recovered/Resolved]

NARRATIVE: CASE EVENT DATE: 20210629
